FAERS Safety Report 5922157-3 (Version None)
Quarter: 2008Q4

REPORT INFORMATION
  Report Type: 
  Country: None (occurrence: None)
  Receive Date: 20081017
  Receipt Date: 20081002
  Transmission Date: 20090506
  Serious: Yes (Other)
  Sender: FDA-Public Use
  Company Number: US-BAYER-200813106BCC

PATIENT
  Age: 68 Year
  Sex: Male
  Weight: 99 kg

DRUGS (13)
  1. ASPIRIN [Suspect]
     Indication: ANALGESIA
     Dosage: TOTAL DAILY DOSE: 3900 MG  UNIT DOSE: 325 MG
     Route: 048
     Dates: start: 19850101, end: 20030101
  2. BAYER HEART VITALITY [Suspect]
     Indication: DRUG USE FOR UNKNOWN INDICATION
     Dosage: TOTAL DAILY DOSE: 1 DF  UNIT DOSE: 1 DF
     Dates: start: 20060101
  3. BAYER BACK + BODY [Suspect]
     Indication: DRUG USE FOR UNKNOWN INDICATION
     Dosage: TOTAL DAILY DOSE: 1 DF  UNIT DOSE: 1 DF
     Dates: start: 20080401
  4. DIFUSINOL [Concomitant]
  5. DIAZEPAM [Concomitant]
  6. GLUCOSAMINE AND CHONDROITIN [Concomitant]
  7. LUTEIN [Concomitant]
     Dates: start: 19800101, end: 20000101
  8. TYLENOL W/ CODEINE NO. 4 [Concomitant]
     Dosage: TOTAL DAILY DOSE: 3 DF  UNIT DOSE: 1 DF
     Route: 048
     Dates: start: 20030101
  9. PROPRANOLOL [Concomitant]
  10. ALPRAZOLAM [Concomitant]
  11. GABAPENTIN [Concomitant]
  12. LOVASTATIN [Concomitant]
  13. NIASPAN [Concomitant]

REACTIONS (5)
  - HEART INJURY [None]
  - HEPATIC FUNCTION ABNORMAL [None]
  - MYOCARDIAL INFARCTION [None]
  - TINNITUS [None]
  - UNEVALUABLE EVENT [None]
